FAERS Safety Report 15340422 (Version 1)
Quarter: 2018Q3

REPORT INFORMATION
  Report Type: Spontaneous
  Country: US (occurrence: US)
  Receive Date: 20180831
  Receipt Date: 20180831
  Transmission Date: 20181010
  Serious: Yes (Hospitalization)
  Sender: FDA-Public Use
  Company Number: US-LANNETT COMPANY, INC.-US-2018LAN001008

PATIENT

DRUGS (4)
  1. BUPRENORPHINE AND NALOXONE [Suspect]
     Active Substance: BUPRENORPHINE\NALOXONE
     Indication: EUPHORIC MOOD
  2. GABAPENTIN. [Suspect]
     Active Substance: GABAPENTIN
     Indication: EUPHORIC MOOD
  3. GABAPENTIN. [Suspect]
     Active Substance: GABAPENTIN
     Indication: SEDATION
     Dosage: 6 DF, UNK (6 X 600 MG TABLETS)
     Route: 065
  4. BUPRENORPHINE AND NALOXONE [Suspect]
     Active Substance: BUPRENORPHINE\NALOXONE
     Indication: SEDATION
     Dosage: 2 DF, UNK (DOUBLE DOSE 2 X 8/2 MG EACH BUPRENORPHINE/NALOXONE)
     Route: 065

REACTIONS (3)
  - Potentiating drug interaction [Unknown]
  - Drug abuse [Unknown]
  - Depressed level of consciousness [Unknown]
